FAERS Safety Report 19747568 (Version 1)
Quarter: 2021Q3

REPORT INFORMATION
  Report Type: Spontaneous
  Country: US (occurrence: US)
  Receive Date: 20210826
  Receipt Date: 20210826
  Transmission Date: 20211014
  Serious: No
  Sender: FDA-Public Use
  Company Number: US-LUPIN PHARMACEUTICALS INC.-2021-15460

PATIENT
  Age: 75 Year
  Sex: Female

DRUGS (1)
  1. ALBUTEROL SULFATE INHALATION AEROSOL, 90 MCG/ACTUATION [Suspect]
     Active Substance: ALBUTEROL SULFATE
     Indication: BRONCHITIS
     Dosage: UNK, PRN
     Dates: start: 202108

REACTIONS (3)
  - Wrong technique in product usage process [Unknown]
  - No adverse event [Unknown]
  - Device malfunction [Unknown]

NARRATIVE: CASE EVENT DATE: 202108
